FAERS Safety Report 10968079 (Version 1)
Quarter: 2015Q1

REPORT INFORMATION
  Report Type: Spontaneous
  Country: ES (occurrence: ES)
  Receive Date: 20150330
  Receipt Date: 20150330
  Transmission Date: 20150721
  Serious: Yes (Hospitalization)
  Sender: FDA-Public Use
  Company Number: ES-ABBVIE-15P-144-1365430-00

PATIENT
  Sex: Female

DRUGS (1)
  1. DUODOPA [Suspect]
     Active Substance: CARBIDOPA\LEVODOPA
     Indication: PARKINSON^S DISEASE
     Dosage: 1 CARTRIDGE PER DAY
     Route: 065
     Dates: start: 201310, end: 201503

REACTIONS (4)
  - Device kink [Recovering/Resolving]
  - Abdominal pain [Unknown]
  - Device issue [Recovering/Resolving]
  - Bezoar [Recovering/Resolving]

NARRATIVE: CASE EVENT DATE: 20150317
